FAERS Safety Report 14965292 (Version 1)
Quarter: 2018Q2

REPORT INFORMATION
  Report Type: Spontaneous
  Country: GB (occurrence: GB)
  Receive Date: 20180601
  Receipt Date: 20180601
  Transmission Date: 20180711
  Serious: Yes (Other)
  Sender: FDA-Public Use
  Company Number: GB-BAUSCH-BL-2018-015650

PATIENT
  Age: 16 Year
  Sex: Female

DRUGS (3)
  1. PREDNISOLONE. [Suspect]
     Active Substance: PREDNISOLONE
     Indication: AUTOANTIBODY POSITIVE
  2. PREDNISOLONE. [Suspect]
     Active Substance: PREDNISOLONE
     Indication: ANAEMIA
     Route: 065
  3. AZATHIOPRINE. [Suspect]
     Active Substance: AZATHIOPRINE
     Indication: AUTOANTIBODY POSITIVE
     Dosage: 1 DF, QD
     Route: 065

REACTIONS (4)
  - Connective tissue disorder [Unknown]
  - Drug effect incomplete [Unknown]
  - Haemorrhage [Unknown]
  - Platelet count decreased [Unknown]
